FAERS Safety Report 15888276 (Version 1)
Quarter: 2019Q1

REPORT INFORMATION
  Report Type: Spontaneous
  Country: AU (occurrence: AU)
  Receive Date: 20190130
  Receipt Date: 20190130
  Transmission Date: 20190417
  Serious: Yes (Other)
  Sender: FDA-Public Use
  Company Number: AU-TEVA-2019-AU-1002979

PATIENT
  Age: 74 Year
  Sex: Male

DRUGS (4)
  1. PACLITAXEL. [Suspect]
     Active Substance: PACLITAXEL
     Dosage: DOSAGE UNKNOWN
  2. RAMUCIRUMAB [Suspect]
     Active Substance: RAMUCIRUMAB
     Dosage: DOSAGE UNKNOWN
  3. CAPECITABINE. [Suspect]
     Active Substance: CAPECITABINE
     Dosage: DOSAGE UNKNOWN
  4. OXALIPLATIN. [Suspect]
     Active Substance: OXALIPLATIN
     Dosage: DOSAGE UNKNOWN

REACTIONS (2)
  - Metastatic gastric cancer [Unknown]
  - Malignant neoplasm progression [Unknown]
